FAERS Safety Report 7311409-0 (Version None)
Quarter: 2011Q1

REPORT INFORMATION
  Report Type: 
  Country: None (occurrence: None)
  Receive Date: 20110224
  Receipt Date: 20110223
  Transmission Date: 20110831
  Serious: Yes (Hospitalization)
  Sender: FDA-Public Use
  Company Number: DE-PFIZER INC-2010055369

PATIENT
  Age: 70 Year
  Sex: Male
  Weight: 110 kg

DRUGS (13)
  1. DULOXETINE [Concomitant]
     Indication: PAIN
     Dosage: 30 MG, 1X/DAY
     Route: 048
  2. COLESTYRAMINE/DICLOFENAC [Concomitant]
     Indication: PAIN
     Dosage: UNK
     Route: 048
  3. PROTAPHAN [Concomitant]
     Indication: DIABETES MELLITUS
     Dosage: 32 IU, 2X/DAY
     Route: 058
  4. BLINDED PLACEBO [Suspect]
     Indication: RENAL CELL CARCINOMA
     Dosage: 50 MG, 1X/DAY
     Route: 048
     Dates: start: 20090819, end: 20100407
  5. BLINDED NO SUBJECT DRUG [Suspect]
     Indication: RENAL CELL CARCINOMA
     Dosage: 50 MG, 1X/DAY
     Route: 048
     Dates: start: 20090819, end: 20100407
  6. MAGNESIUM CARBONATE [Concomitant]
     Indication: CARDIOVASCULAR DISORDER
     Dosage: 300 MG, 1X/DAY
     Route: 048
  7. TRIAMTERENE AND HYDROCHLOROTHIAZIDE [Concomitant]
     Indication: POLYURIA
     Dosage: 25 MG, 50 MG, 1X/DAY
     Route: 048
     Dates: end: 20100430
  8. RAMIPRIL/HYDROCHLOROTHIAZIDE [Concomitant]
     Indication: HYPERTENSION
     Dosage: 3.75 MG/18.75 MG, 1X/DAY
     Route: 048
  9. TRAMADOL HCL [Concomitant]
     Indication: PAIN
     Dosage: 100 MG, 1X/DAY
     Route: 048
  10. SUNITINIB MALATE [Suspect]
     Indication: RENAL CELL CARCINOMA
     Dosage: 50 MG, 1X/DAY
     Route: 048
     Dates: start: 20090819, end: 20100407
  11. ISOSORBIDE DINITRATE [Concomitant]
     Indication: CARDIOVASCULAR DISORDER
     Dosage: 20 MG, 1X/DAY
     Route: 048
  12. SIMVASTATIN [Concomitant]
     Indication: HYPERCHOLESTEROLAEMIA
     Dosage: 20 MG, 1X/DAY
     Route: 048
  13. ASPIRIN [Concomitant]
     Indication: CARDIOVASCULAR DISORDER
     Dosage: 100 MG, 1X/DAY
     Route: 048

REACTIONS (1)
  - MYOCARDIAL INFARCTION [None]
